FAERS Safety Report 26114968 (Version 2)
Quarter: 2025Q4

REPORT INFORMATION
  Report Type: Report from Study
  Country: US (occurrence: None)
  Receive Date: 20251203
  Receipt Date: 20251224
  Transmission Date: 20260117
  Serious: Yes (Other)
  Sender: SYNDAX
  Company Number: US-SYNDAX PHARMACEUTICALS, INC.-2025US000701

PATIENT
  Age: 31 Year
  Sex: Male
  Weight: 71 kg

DRUGS (1)
  1. REVUFORJ [Suspect]
     Active Substance: REVUMENIB CITRATE
     Indication: Product used for unknown indication
     Dosage: 270 MILLIGRAM, BID (160 MG AND 110 MG)
     Route: 061

REACTIONS (3)
  - Platelet transfusion [Unknown]
  - Transfusion [Unknown]
  - Antibiotic therapy [Unknown]

NARRATIVE: CASE EVENT DATE: 20251124
